FAERS Safety Report 4805728-7 (Version None)
Quarter: 2005Q4

REPORT INFORMATION
  Report Type: 
  Country: None (occurrence: None)
  Receive Date: 20051021
  Receipt Date: 20051011
  Transmission Date: 20060501
  Serious: Yes (Hospitalization)
  Sender: FDA-Public Use
  Company Number: 200517503US

PATIENT
  Sex: Female

DRUGS (4)
  1. ALLEGRA [Suspect]
     Indication: HYPERSENSITIVITY
     Route: 048
  2. DIOVAN [Concomitant]
  3. METOPROLOL [Concomitant]
  4. LACTAID [Concomitant]
     Dosage: DOSE: UNKNOWN

REACTIONS (10)
  - ABDOMINAL PAIN [None]
  - BACK PAIN [None]
  - HEADACHE [None]
  - LABYRINTHITIS [None]
  - PANCREATITIS [None]
  - PERICARDIAL EFFUSION [None]
  - PLEURAL EFFUSION [None]
  - SHOULDER PAIN [None]
  - UPPER RESPIRATORY TRACT INFECTION [None]
  - VOMITING [None]
